FAERS Safety Report 6985091-6 (Version None)
Quarter: 2010Q3

REPORT INFORMATION
  Report Type: 
  Country: None (occurrence: None)
  Receive Date: 20100915
  Receipt Date: 20100909
  Transmission Date: 20110219
  Serious: Yes (Hospitalization)
  Sender: FDA-Public Use
  Company Number: PHHY2010BR59910

PATIENT
  Age: 78 Year
  Sex: Male

DRUGS (2)
  1. STALEVO 100 [Suspect]
     Indication: PARKINSON'S DISEASE
     Dosage: 200/150/37.5 MG
     Route: 048
  2. STALEVO 100 [Suspect]
     Dosage: 100 MG
     Route: 048

REACTIONS (1)
  - FEELING ABNORMAL [None]
